FAERS Safety Report 6888639-5 (Version None)
Quarter: 2010Q3

REPORT INFORMATION
  Report Type: 
  Country: None (occurrence: None)
  Receive Date: 20100730
  Receipt Date: 20070605
  Transmission Date: 20110219
  Serious: No
  Sender: FDA-Public Use
  Company Number: US-PFIZER INC-2007046561

PATIENT

DRUGS (1)
  1. SINEQUAN [Suspect]
     Dosage: 5 EVERY 1 DAYS
     Route: 048

REACTIONS (3)
  - FATIGUE [None]
  - MEDICATION ERROR [None]
  - SOMNOLENCE [None]
